FAERS Safety Report 6647051-4 (Version None)
Quarter: 2010Q1

REPORT INFORMATION
  Report Type: 
  Country: None (occurrence: None)
  Receive Date: 20100323
  Receipt Date: 20100317
  Transmission Date: 20100710
  Serious: Yes (Death, Hospitalization)
  Sender: FDA-Public Use
  Company Number: US-SANOFI-AVENTIS-A03200803264

PATIENT
  Age: 68 Year
  Sex: Male
  Weight: 117.9 kg

DRUGS (12)
  1. AMBIEN CR [Suspect]
     Route: 048
     Dates: start: 20061001
  2. AMBIEN [Suspect]
     Dosage: DOSE TEXT: ONE TABLET AT BEDTIME AS NEEDEDUNIT DOSE: 10 MG
     Route: 048
     Dates: start: 20060201, end: 20060101
  3. AMBIEN [Suspect]
     Route: 048
  4. PLAVIX [Suspect]
     Indication: CORONARY ARTERY DISEASE
     Dosage: UNIT DOSE: 75 MG
     Route: 048
  5. CLOPIDOGREL [Suspect]
     Indication: CORONARY ARTERY DISEASE
     Route: 048
     Dates: start: 20061001
  6. ECOTRIN [Suspect]
     Indication: CORONARY ARTERY DISEASE
     Dosage: UNIT DOSE: 375 MG
     Route: 065
  7. TRICOR [Concomitant]
     Dosage: UNIT DOSE: 145 MG
     Route: 065
  8. ALTACE [Concomitant]
     Dosage: UNIT DOSE: 5 MG
     Route: 048
  9. NORVASC [Concomitant]
     Dosage: UNIT DOSE: 10 MG
     Route: 048
  10. TOPROL-XL [Concomitant]
     Dosage: UNIT DOSE: 100 MG
     Route: 048
  11. VIAGRA [Concomitant]
     Dosage: UNIT DOSE: 50 MG
     Route: 048
  12. BENZONATATE [Concomitant]
     Dosage: DOSE TEXT: 100 MG EVERY 6 HOURS AS NEEDEDUNIT DOSE: 100 MG
     Route: 048

REACTIONS (21)
  - BRAIN COMPRESSION [None]
  - CEREBRAL INFARCTION [None]
  - DEPRESSED LEVEL OF CONSCIOUSNESS [None]
  - EXCORIATION [None]
  - FALL [None]
  - HEAD INJURY [None]
  - HYPOTENSION [None]
  - INTENTIONAL DRUG MISUSE [None]
  - KNEE DEFORMITY [None]
  - LOSS OF CONSCIOUSNESS [None]
  - MIOSIS [None]
  - OXYGEN SATURATION DECREASED [None]
  - PUPIL FIXED [None]
  - PYREXIA [None]
  - SKIN LACERATION [None]
  - SKULL FRACTURED BASE [None]
  - SOMNAMBULISM [None]
  - SUBARACHNOID HAEMORRHAGE [None]
  - SUBCUTANEOUS HAEMATOMA [None]
  - SUBDURAL HAEMATOMA [None]
  - VISUAL MIDLINE SHIFT SYNDROME [None]
